FAERS Safety Report 6918728-8 (Version None)
Quarter: 2010Q3

REPORT INFORMATION
  Report Type: 
  Country: None (occurrence: None)
  Receive Date: 20100811
  Receipt Date: 20100809
  Transmission Date: 20110219
  Serious: Yes (Other)
  Sender: FDA-Public Use
  Company Number: IT-BAYER-201035281GPV

PATIENT
  Age: 94 Year
  Sex: Female

DRUGS (5)
  1. NAPROXEN SODIUM [Suspect]
     Indication: GOUT
     Route: 048
     Dates: start: 20100331, end: 20100423
  2. ASPIRIN [Suspect]
     Indication: PRODUCT USED FOR UNKNOWN INDICATION
     Route: 048
     Dates: start: 20090101, end: 20100423
  3. COMBISARTAN [Suspect]
     Indication: HYPERTENSION
     Route: 048
     Dates: start: 20090101, end: 20100423
  4. ZYLORIC [Concomitant]
     Dosage: UNIT DOSE: 300 MG
     Route: 048
  5. GLICLAZIDE [Concomitant]
     Dosage: UNIT DOSE: 30 MG
     Route: 048

REACTIONS (2)
  - HYPERKALAEMIA [None]
  - RENAL FAILURE ACUTE [None]
